FAERS Safety Report 23293428 (Version 1)
Quarter: 2023Q4

REPORT INFORMATION
  Report Type: Spontaneous
  Country: US (occurrence: US)
  Receive Date: 20231213
  Receipt Date: 20231213
  Transmission Date: 20240110
  Serious: Yes (Hospitalization, Other)
  Sender: FDA-Public Use
  Company Number: US-SUN PHARMACEUTICAL INDUSTRIES LTD-2023R1-423530

PATIENT
  Age: 28 Year
  Sex: Male
  Weight: 77.9 kg

DRUGS (4)
  1. TEMOZOLOMIDE [Suspect]
     Active Substance: TEMOZOLOMIDE
     Indication: Renal cell carcinoma
     Dosage: UNK
     Route: 065
     Dates: start: 20231018
  2. TEMOZOLOMIDE [Suspect]
     Active Substance: TEMOZOLOMIDE
     Dosage: UNK
     Route: 065
     Dates: start: 20231108, end: 20231112
  3. TALAZOPARIB [Suspect]
     Active Substance: TALAZOPARIB
     Indication: Renal cell carcinoma
     Dosage: UNK
     Route: 065
     Dates: start: 20231017
  4. TALAZOPARIB [Suspect]
     Active Substance: TALAZOPARIB
     Dosage: UNK
     Route: 065
     Dates: start: 20231107, end: 20231115

REACTIONS (2)
  - Anal incontinence [Not Recovered/Not Resolved]
  - Anaemia [Not Recovered/Not Resolved]

NARRATIVE: CASE EVENT DATE: 20231019
